FAERS Safety Report 23176917 (Version 2)
Quarter: 2023Q4

REPORT INFORMATION
  Report Type: Other
  Country: BG (occurrence: None)
  Receive Date: 20231113
  Receipt Date: 20231204
  Transmission Date: 20240110
  Serious: Yes (Hospitalization)
  Sender: FDA-Public Use
  Company Number: BG-ROCHE-3455670

PATIENT
  Age: 74 Year
  Sex: Female
  Weight: 79 kg

DRUGS (6)
  1. HERCEPTIN [Suspect]
     Active Substance: TRASTUZUMAB
     Indication: HER2 positive breast cancer
     Dosage: MOST RECENT DOSE PRIOR TO THE EVENT: 03/JAN/2019, 19/MAR/2019
     Route: 042
     Dates: start: 20180613
  2. PERJETA [Suspect]
     Active Substance: PERTUZUMAB
     Indication: HER2 positive breast cancer
     Dosage: MOST RECENT DOSE PRIOR TO THE EVENT: 05/JUL/2018
     Route: 042
     Dates: start: 20180614, end: 20180614
  3. TAXOTERE [Suspect]
     Active Substance: DOCETAXEL
     Indication: HER2 positive breast cancer
     Dosage: MOST RECENT DOSE PRIOR TO THE EVENT: 24/NOV/2018
     Route: 042
     Dates: start: 20180613
  4. LACIDIPINE [Concomitant]
     Active Substance: LACIDIPINE
     Dosage: ONGOING = NOT CHECKED
     Dates: end: 20230715
  5. ZOLOFT [Concomitant]
     Active Substance: SERTRALINE HYDROCHLORIDE
     Dosage: ONGOING = NOT CHECKED
     Dates: end: 20230715
  6. VALTENSIN PLUS [Concomitant]
     Dosage: ONGOING = NOT CHECKED
     Dates: end: 20230715

REACTIONS (1)
  - Syncope [Recovered/Resolved]

NARRATIVE: CASE EVENT DATE: 20190402
